FAERS Safety Report 23629282 (Version 2)
Quarter: 2024Q1

REPORT INFORMATION
  Report Type: Report from Study
  Country: CA (occurrence: CA)
  Receive Date: 20240313
  Receipt Date: 20240325
  Transmission Date: 20240409
  Serious: No
  Sender: FDA-Public Use
  Company Number: CA-BAUSCH-BL-2022-019371

PATIENT
  Age: 64 Year
  Sex: Female

DRUGS (4)
  1. SILIQ [Suspect]
     Active Substance: BRODALUMAB
     Indication: Psoriasis
     Dosage: 210ML/1.5ML, WEEKLY, WEEK 0, 1 AND 2
     Route: 058
     Dates: start: 20220729, end: 20220812
  2. SILIQ [Suspect]
     Active Substance: BRODALUMAB
     Dosage: 210ML/1.5ML, Q2 WEEKS
     Route: 058
     Dates: start: 20220909
  3. SILIQ [Suspect]
     Active Substance: BRODALUMAB
     Dosage: 210ML/1.5ML, Q2 WEEKS
     Route: 058
     Dates: start: 20240220
  4. SILIQ [Suspect]
     Active Substance: BRODALUMAB
     Dosage: 210ML/1.5ML, Q2 WEEKS
     Route: 058
     Dates: start: 20240305

REACTIONS (4)
  - Arthralgia [Recovered/Resolved]
  - White coat hypertension [Unknown]
  - Sensitive skin [Unknown]
  - COVID-19 [Not Recovered/Not Resolved]

NARRATIVE: CASE EVENT DATE: 20220101
